FAERS Safety Report 7380239-6 (Version None)
Quarter: 2011Q1

REPORT INFORMATION
  Report Type: 
  Country: None (occurrence: None)
  Receive Date: 20110324
  Receipt Date: 20110324
  Transmission Date: 20110831
  Serious: No
  Sender: FDA-Public Use
  Company Number: None

PATIENT
  Sex: Female
  Weight: 29.3 kg

DRUGS (6)
  1. PREDNISONE [Suspect]
     Dosage: 1822 MG
     Dates: end: 20110114
  2. VINCRISTINE SULFATE [Suspect]
     Dosage: 6.4 MG
     Dates: end: 20110106
  3. PEG-L-ASPARAGINASE (PEGASPARGASE ONCOSPAR) [Suspect]
     Dosage: 2675 IU
     Dates: end: 20101220
  4. METHOTREXATE [Suspect]
     Dosage: 30 MG
     Dates: end: 20110114
  5. CYTARABINE [Suspect]
     Dosage: 70 MG
     Dates: end: 20101216
  6. DAUNORUBICIN [Suspect]
     Dosage: 108 MG
     Dates: end: 20110106

REACTIONS (1)
  - HYPERGLYCAEMIA [None]
